FAERS Safety Report 23013455 (Version 2)
Quarter: 2023Q4

REPORT INFORMATION
  Report Type: Spontaneous
  Country: US (occurrence: US)
  Receive Date: 20231001
  Receipt Date: 20231006
  Transmission Date: 20240110
  Serious: No
  Sender: FDA-Public Use
  Company Number: US-SA-SAC20230926000498

PATIENT
  Age: 27 Year
  Sex: Female
  Weight: 52.61 kg

DRUGS (13)
  1. DUPIXENT [Suspect]
     Active Substance: DUPILUMAB
     Indication: Asthma
     Dosage: 300 MG, QOW
     Route: 058
     Dates: start: 201907, end: 20230906
  2. DUPIXENT [Suspect]
     Active Substance: DUPILUMAB
     Indication: Dermatitis atopic
  3. DUPIXENT [Suspect]
     Active Substance: DUPILUMAB
     Indication: Idiopathic urticaria
  4. CIBINQO [Suspect]
     Active Substance: ABROCITINIB
     Dosage: UNK
     Route: 065
     Dates: start: 202309
  5. FLUCONAZOLE [Concomitant]
     Active Substance: FLUCONAZOLE
     Dosage: UNK
  6. PIMECROLIMUS [Concomitant]
     Active Substance: PIMECROLIMUS
     Dosage: UNK
  7. METRONIDAZOLE [Concomitant]
     Active Substance: METRONIDAZOLE
     Dosage: UNK
  8. TACROLIMUS [Concomitant]
     Active Substance: TACROLIMUS
     Dosage: UNK
  9. NEXPLANON [Concomitant]
     Active Substance: ETONOGESTREL
     Dosage: UNK
  10. MUPIROCIN [Concomitant]
     Active Substance: MUPIROCIN
     Dosage: UNK
  11. PHENAZOPYRIDINE [Concomitant]
     Active Substance: PHENAZOPYRIDINE
     Dosage: UNK
  12. IBUPROFEN [Concomitant]
     Active Substance: IBUPROFEN
     Dosage: UNK
  13. BETAMETHASONE DIPROPIONATE\CLOTRIMAZOLE [Concomitant]
     Active Substance: BETAMETHASONE DIPROPIONATE\CLOTRIMAZOLE
     Dosage: UNK

REACTIONS (7)
  - Lip dry [Recovered/Resolved]
  - Chapped lips [Recovered/Resolved]
  - Lip erythema [Recovered/Resolved]
  - Cheilitis [Recovered/Resolved]
  - Conjunctivitis [Unknown]
  - Product use in unapproved indication [Unknown]
  - Dizziness [Unknown]

NARRATIVE: CASE EVENT DATE: 20190701
